FAERS Safety Report 9963745 (Version 1)
Quarter: 2014Q1

REPORT INFORMATION
  Report Type: Report from Study
  Country: US (occurrence: US)
  Receive Date: 20140305
  Receipt Date: 20140305
  Transmission Date: 20141002
  Serious: No
  Sender: FDA-Public Use
  Company Number: US-ABBVIE-13P-163-1118752-00

PATIENT
  Age: 64 Year
  Sex: Female

DRUGS (1)
  1. HUMIRA [Suspect]
     Indication: PSORIASIS
     Route: 058
     Dates: start: 20130120

REACTIONS (5)
  - Oropharyngeal pain [Unknown]
  - Malaise [Unknown]
  - Cough [Unknown]
  - White blood cell count increased [Unknown]
  - Lung infection [Unknown]
